FAERS Safety Report 5976704-6 (Version None)
Quarter: 2008Q4

REPORT INFORMATION
  Report Type: 
  Country: None (occurrence: None)
  Receive Date: 20081201
  Receipt Date: 20081201
  Transmission Date: 20090506
  Serious: No
  Sender: FDA-Public Use
  Company Number: None

PATIENT
  Sex: Female
  Weight: 68.4932 kg

DRUGS (1)
  1. SEROQUEL [Suspect]
     Indication: SCHIZOPHRENIA, PARANOID TYPE
     Dosage: START FROM 50MG TITRATED UP TO 150MG
     Dates: start: 20080904

REACTIONS (3)
  - SEDATION [None]
  - SOMNOLENCE [None]
  - WHEELCHAIR USER [None]
